FAERS Safety Report 12609038 (Version 3)
Quarter: 2016Q4

REPORT INFORMATION
  Report Type: Spontaneous
  Country: JP (occurrence: JP)
  Receive Date: 20160731
  Receipt Date: 20161102
  Transmission Date: 20170207
  Serious: Yes (Other)
  Sender: FDA-Public Use
  Company Number: PHJP2016JP021444

PATIENT
  Sex: Male

DRUGS (2)
  1. STELARA [Suspect]
     Active Substance: USTEKINUMAB
     Indication: PSORIASIS
     Dosage: 1 UKN, UNK
     Route: 058
     Dates: start: 201304, end: 201604
  2. COSENTYX [Suspect]
     Active Substance: SECUKINUMAB
     Indication: PSORIASIS
     Dosage: 300 MG PER ADMINISTRATION
     Route: 058
     Dates: start: 20160411, end: 20160704

REACTIONS (1)
  - Benign neoplasm of prostate [Recovering/Resolving]

NARRATIVE: CASE EVENT DATE: 20160704
